FAERS Safety Report 4602053-4 (Version None)
Quarter: 2005Q2

REPORT INFORMATION
  Report Type: 
  Country: None (occurrence: None)
  Receive Date: 20050214
  Receipt Date: 20040929
  Transmission Date: 20051028
  Serious: Yes (Other)
  Sender: FDA-Public Use
  Company Number: 8007497

PATIENT
  Age: 59 Year
  Sex: Male

DRUGS (7)
  1. KEPPRA [Suspect]
     Indication: ESSENTIAL TREMOR
     Dosage: 250 MG 2/D PO
     Route: 048
     Dates: start: 20031101, end: 20031101
  2. KEPPRA [Suspect]
     Indication: ESSENTIAL TREMOR
     Dosage: 500 MG 2/D PO
     Route: 048
     Dates: start: 20031101
  3. CELEXA [Concomitant]
  4. ALPRAZOLAM [Concomitant]
  5. LIPITOR [Concomitant]
  6. SYNTHROID [Concomitant]
  7. DEPAKOTE [Concomitant]

REACTIONS (3)
  - AGGRESSION [None]
  - DEPRESSED MOOD [None]
  - SUICIDAL IDEATION [None]
